FAERS Safety Report 24003345 (Version 1)
Quarter: 2024Q2

REPORT INFORMATION
  Report Type: Other
  Country: US (occurrence: US)
  Receive Date: 20240624
  Receipt Date: 20240624
  Transmission Date: 20240716
  Serious: Yes (Hospitalization)
  Sender: FDA-Public Use
  Company Number: US-DEXPHARM-2024-1816

PATIENT
  Age: 68 Year
  Sex: Female

DRUGS (2)
  1. OMEPRAZOLE [Interacting]
     Active Substance: OMEPRAZOLE
     Indication: Gastrooesophageal reflux disease
     Dosage: 40 MG TWICE DAILY
  2. FERROUS SULFATE [Interacting]
     Active Substance: FERROUS SULFATE
     Dosage: ENTERIC COATED FERROUS SULFATE THREE TIMES DAILY

REACTIONS (3)
  - Gastritis [Recovered/Resolved with Sequelae]
  - Iron deficiency anaemia [Recovered/Resolved with Sequelae]
  - Drug interaction [Recovered/Resolved with Sequelae]
